FAERS Safety Report 15395525 (Version 1)
Quarter: 2018Q3

REPORT INFORMATION
  Report Type: Spontaneous
  Country: US (occurrence: US)
  Receive Date: 20180918
  Receipt Date: 20180918
  Transmission Date: 20181010
  Serious: Yes (Hospitalization, Disabling, Other)
  Sender: FDA-Public Use
  Company Number: US-JNJFOC-20180906978

PATIENT
  Age: 57 Year
  Sex: Male

DRUGS (1)
  1. INVOKANA [Suspect]
     Active Substance: CANAGLIFLOZIN
     Indication: TYPE 2 DIABETES MELLITUS
     Route: 048
     Dates: start: 20150429

REACTIONS (9)
  - Osteomyelitis [Recovered/Resolved]
  - Toe amputation [Unknown]
  - Extremity necrosis [Recovered/Resolved]
  - Diabetic foot [Not Recovered/Not Resolved]
  - Neuropathic arthropathy [Unknown]
  - Foot deformity [Unknown]
  - Osteomyelitis acute [Recovered/Resolved]
  - Cellulitis [Unknown]
  - Diabetic foot infection [Recovering/Resolving]

NARRATIVE: CASE EVENT DATE: 2015
